FAERS Safety Report 10412368 (Version 1)
Quarter: 2014Q3

REPORT INFORMATION
  Report Type: Spontaneous
  Country: US (occurrence: None)
  Receive Date: 20140826
  Receipt Date: 20140826
  Transmission Date: 20150326
  Serious: Yes (Death, Hospitalization, Disabling)
  Sender: FDA-Public Use
  Company Number: None

PATIENT
  Age: 59 Year
  Sex: Male
  Weight: 81.65 kg

DRUGS (1)
  1. GILENYA [Suspect]
     Active Substance: FINGOLIMOD HYDROCHLORIDE
     Indication: MULTIPLE SCLEROSIS
     Dosage: 1 PILL DAILY  ONCE DAILY TAKEN BY MOUTH
     Route: 048
     Dates: start: 20120102, end: 20130117

REACTIONS (3)
  - Convulsion [None]
  - Brain neoplasm [None]
  - Skin lesion [None]

NARRATIVE: CASE EVENT DATE: 20130117
